FAERS Safety Report 9830689 (Version 2)
Quarter: 2014Q2

REPORT INFORMATION
  Report Type: Spontaneous
  Country: IT (occurrence: IT)
  Receive Date: 20140120
  Receipt Date: 20140402
  Transmission Date: 20141212
  Serious: Yes (Hospitalization)
  Sender: FDA-Public Use
  Company Number: IT-ASTRAZENECA-2014SE03012

PATIENT
  Age: 60 Year
  Sex: Female

DRUGS (2)
  1. SEROQUEL [Suspect]
     Route: 048
     Dates: end: 20120902
  2. SEROQUEL [Suspect]
     Dosage: 200 MG IN THE MORNING AND ANOTHER 400 MG BY MISTAKE
     Route: 048
     Dates: start: 20120905, end: 20120905

REACTIONS (3)
  - Tachycardia [Recovering/Resolving]
  - Extra dose administered [Unknown]
  - Medication error [Recovering/Resolving]
